FAERS Safety Report 12933450 (Version 4)
Quarter: 2018Q1

REPORT INFORMATION
  Report Type: Spontaneous
  Country: US (occurrence: US)
  Receive Date: 20161111
  Receipt Date: 20180105
  Transmission Date: 20180508
  Serious: Yes (Hospitalization, Other)
  Sender: FDA-Public Use
  Company Number: US-ASTELLAS-2016US043931

PATIENT
  Sex: Male

DRUGS (2)
  1. XTANDI [Suspect]
     Active Substance: ENZALUTAMIDE
     Route: 048
  2. XTANDI [Suspect]
     Active Substance: ENZALUTAMIDE
     Indication: PROSTATE CANCER
     Route: 048
     Dates: start: 20160915

REACTIONS (6)
  - Cerebrovascular accident [Recovering/Resolving]
  - Blood creatinine increased [Not Recovered/Not Resolved]
  - Sepsis [Recovering/Resolving]
  - Dementia [Not Recovered/Not Resolved]
  - Fatigue [Not Recovered/Not Resolved]
  - Intestinal mass [Recovering/Resolving]
